FAERS Safety Report 22270330 (Version 1)
Quarter: 2023Q2

REPORT INFORMATION
  Report Type: Spontaneous
  Country: None (occurrence: GB)
  Receive Date: 20230501
  Receipt Date: 20230501
  Transmission Date: 20230721
  Serious: No
  Sender: FDA-Public Use
  Company Number: GB-Canton Laboratories, LLC-2140967

PATIENT
  Age: 34 Year
  Sex: Male

DRUGS (2)
  1. NAPROSYN [Suspect]
     Active Substance: NAPROXEN
  2. ESOMEPRAZOLE. [Suspect]
     Active Substance: ESOMEPRAZOLE MAGNESIUM

REACTIONS (10)
  - Anxiety [Unknown]
  - Fatigue [Unknown]
  - Muscular weakness [Unknown]
  - Feeling abnormal [Unknown]
  - Insomnia [Unknown]
  - Heart rate increased [Unknown]
  - Muscle twitching [Unknown]
  - Abdominal pain upper [Unknown]
  - Dehydration [Unknown]
  - Hyperhidrosis [Unknown]

NARRATIVE: CASE EVENT DATE: 20221230
